FAERS Safety Report 7275603-X (Version None)
Quarter: 2011Q1

REPORT INFORMATION
  Report Type: 
  Country: None (occurrence: None)
  Receive Date: 20110202
  Receipt Date: 20110202
  Transmission Date: 20110831
  Serious: Yes (Other)
  Sender: FDA-Public Use
  Company Number: None

PATIENT
  Age: 49 Year
  Sex: Male
  Weight: 72.5755 kg

DRUGS (1)
  1. ALCOHOL PREP PAD ISOPROPYL ALCOHOL 70% TRIAD GROUP, INC [Suspect]
     Indication: INJECTION
     Dosage: 1 PAD DAILY EVERY OTHER DAY CUTANEOUS
     Route: 003
     Dates: start: 20100101, end: 20110121

REACTIONS (3)
  - MULTIPLE SCLEROSIS RELAPSE [None]
  - SKIN INFECTION [None]
  - SKIN NECROSIS [None]
